FAERS Safety Report 6084226-X (Version None)
Quarter: 2009Q1

REPORT INFORMATION
  Report Type: 
  Country: None (occurrence: None)
  Receive Date: 20090219
  Receipt Date: 20090210
  Transmission Date: 20090719
  Serious: Yes (Hospitalization)
  Sender: FDA-Public Use
  Company Number: JP-ROCHE-557432

PATIENT
  Sex: Male
  Weight: 46.3 kg

DRUGS (18)
  1. CAPECITABINE [Suspect]
     Indication: GASTRIC CANCER
     Dosage: UNIT: MG/DAY. THERAPY TEMPORARILY INTERRUPTED. FREQUENCY: D1-14Q3W.
     Route: 048
     Dates: start: 20080115, end: 20080330
  2. CAPECITABINE [Suspect]
     Dosage: UNIT REPORTED AS MG/DAY, FREQUENCY REPORTED AS D1-14Q3W. DOSAGE REDUCED TO 75 %.
     Route: 048
     Dates: start: 20080501, end: 20080522
  3. CAPECITABINE [Suspect]
     Route: 048
     Dates: start: 20080612
  4. TRASTUZUMAB [Suspect]
     Indication: GASTRIC CANCER
     Dosage: DOSAGE FORM: INFUSION. THERAPY TEMPORARILY INTERRUPTED.
     Route: 042
     Dates: start: 20080115, end: 20080321
  5. TRASTUZUMAB [Suspect]
     Dosage: DETAILS OF NEW DOSING REGIMEN NOT REPORTED. 5 TH CYCLE STARTED.
     Route: 042
     Dates: start: 20080501
  6. TRASTUZUMAB [Suspect]
     Dosage: SIXTH CYCLE. DETAILS OF NEW DOSING REGIMEN NOT REPORTED.
     Route: 042
     Dates: start: 20080522
  7. CISPLATIN [Suspect]
     Indication: GASTRIC CANCER
     Dosage: DOSAGE FORM: INFUSION. THERAPY TEMPORARILY INTERRUPTED.
     Route: 042
     Dates: start: 20080115, end: 20080321
  8. CISPLATIN [Suspect]
     Dosage: DETAILS OF NEW DOSING REGIMEN NOT REPORTED.
     Route: 042
     Dates: start: 20080501, end: 20080522
  9. ZOLPIDEM TARTRATE [Concomitant]
     Dates: start: 20071217, end: 20080406
  10. MAGNESIUM OXIDE [Concomitant]
     Dates: start: 20080322, end: 20080407
  11. CALCIUM LACTATE [Concomitant]
     Dates: start: 20080319, end: 20080505
  12. ALFACALCIDOL [Concomitant]
     Dates: start: 20080401, end: 20080407
  13. VITAMIN B-12 [Concomitant]
     Dates: start: 20080403
  14. CALCIUM CHLORIDE [Concomitant]
     Dates: start: 20080401, end: 20080507
  15. MECOBALAMIN [Concomitant]
     Dates: start: 20080403, end: 20080508
  16. FERRIC OXIDE, SACCHARATED [Concomitant]
     Dates: start: 20080408, end: 20080409
  17. ACETAMINOPHEN [Concomitant]
     Dates: start: 20080407, end: 20080410
  18. DEXTROSE 5% [Concomitant]
     Dosage: DRUG NAME REPORTED AS '5 % GLUCOSE'.
     Dates: start: 20080401, end: 20080403

REACTIONS (4)
  - DISSEMINATED INTRAVASCULAR COAGULATION [None]
  - ILEUS PARALYTIC [None]
  - SEPSIS [None]
  - VENOUS THROMBOSIS [None]
